FAERS Safety Report 24568170 (Version 1)
Quarter: 2024Q4

REPORT INFORMATION
  Report Type: Report from Study
  Country: DE (occurrence: DE)
  Receive Date: 20241031
  Receipt Date: 20241031
  Transmission Date: 20250114
  Serious: Yes (Life-Threatening, Hospitalization, Other)
  Sender: GILEAD
  Company Number: DE-GILEAD-2024-0690092

PATIENT
  Age: 58 Year
  Sex: Female
  Weight: 52.6 kg

DRUGS (5)
  1. SACITUZUMAB GOVITECAN-HZIY [Suspect]
     Active Substance: SACITUZUMAB GOVITECAN-HZIY
     Indication: Colorectal cancer metastatic
     Dosage: 526 MG
     Route: 065
     Dates: start: 20241015, end: 20241015
  2. LAFEXINA [Concomitant]
     Dosage: UNK
     Route: 048
     Dates: start: 20240920, end: 20240930
  3. METAMIZOLE [Concomitant]
     Active Substance: METAMIZOLE
     Indication: Pain
     Dosage: UNK
     Route: 048
     Dates: start: 20240920, end: 20241002
  4. MCP [Concomitant]
     Active Substance: METOCLOPRAMIDE HYDROCHLORIDE
     Indication: Constipation
     Dosage: 10 MG
     Route: 048
     Dates: start: 20241017
  5. PIPERACILLIN SODIUM\TAZOBACTAM SODIUM [Concomitant]
     Active Substance: PIPERACILLIN SODIUM\TAZOBACTAM SODIUM

REACTIONS (4)
  - Ileus [Recovering/Resolving]
  - Pneumonia [Recovering/Resolving]
  - Ileus [Recovered/Resolved]
  - Vomiting [Recovering/Resolving]

NARRATIVE: CASE EVENT DATE: 20240930
